FAERS Safety Report 4373156-7 (Version None)
Quarter: 2004Q2

REPORT INFORMATION
  Report Type: 
  Country: None (occurrence: None)
  Receive Date: 20040603
  Receipt Date: 20040518
  Transmission Date: 20050107
  Serious: Yes (Other)
  Sender: FDA-Public Use
  Company Number: 195251

PATIENT
  Age: 61 Year
  Sex: Female

DRUGS (8)
  1. AVONEX [Suspect]
     Indication: MULTIPLE SCLEROSIS
     Dosage: 30 MCG QW; IM
     Route: 030
     Dates: start: 20010827
  2. AVONEX [Suspect]
     Indication: MULTIPLE SCLEROSIS
     Dosage: 30 MCG QW; IM
     Route: 030
  3. ZANTAC [Concomitant]
  4. AMANTADINE HCL [Concomitant]
  5. ATENOLOL [Concomitant]
  6. ALBUTEROL [Concomitant]
  7. CETIRIZINE HCL [Concomitant]
  8. PREMPRO [Concomitant]

REACTIONS (1)
  - BREAST CANCER IN SITU [None]
